FAERS Safety Report 9842712 (Version 2)
Quarter: 2014Q1

REPORT INFORMATION
  Report Type: Spontaneous
  Country: MY (occurrence: MY)
  Receive Date: 20140124
  Receipt Date: 20140325
  Transmission Date: 20141002
  Serious: Yes (Other)
  Sender: FDA-Public Use
  Company Number: MY-PFIZER INC-2014022253

PATIENT
  Age: 44 Year
  Sex: Female

DRUGS (1)
  1. LYRICA [Suspect]
     Indication: SPONDYLOLISTHESIS
     Dosage: 75 MG, DAILY
     Route: 048
     Dates: start: 20120517, end: 20120518

REACTIONS (4)
  - Orbital oedema [Unknown]
  - Hypoaesthesia [Unknown]
  - Dizziness [Unknown]
  - Vomiting [Unknown]
